FAERS Safety Report 5631874-4 (Version None)
Quarter: 2008Q1

REPORT INFORMATION
  Report Type: 
  Country: None (occurrence: None)
  Receive Date: 20080220
  Receipt Date: 20080207
  Transmission Date: 20080703
  Serious: Yes (Other)
  Sender: FDA-Public Use
  Company Number: BE-AMGEN-UK264980

PATIENT

DRUGS (3)
  1. KEPIVANCE [Suspect]
     Indication: DRUG USE FOR UNKNOWN INDICATION
  2. DIFLUCAN [Concomitant]
  3. COLIMYCINE [Concomitant]

REACTIONS (1)
  - DIARRHOEA [None]
